FAERS Safety Report 4618275-2 (Version None)
Quarter: 2005Q2

REPORT INFORMATION
  Report Type: 
  Country: None (occurrence: None)
  Receive Date: 20050310
  Receipt Date: 20040305
  Transmission Date: 20051028
  Serious: Yes (Hospitalization)
  Sender: FDA-Public Use
  Company Number: 011-04

PATIENT
  Age: 68 Year
  Sex: Male
  Weight: 81.6475 kg

DRUGS (5)
  1. AMIODARONE HYDROCHLORIDE [Suspect]
     Indication: ARRHYTHMIA
     Dosage: 200 MG ONCE DAILY PO
     Route: 048
     Dates: start: 20000101, end: 20030219
  2. ATENOLOL [Concomitant]
  3. COUMADIN [Concomitant]
  4. OCUVITE [Concomitant]
  5. MULTI-VITAMIN [Concomitant]

REACTIONS (1)
  - HYPERTHYROIDISM [None]
